FAERS Safety Report 10181278 (Version 1)
Quarter: 2014Q2

REPORT INFORMATION
  Report Type: Spontaneous
  Country: US (occurrence: US)
  Receive Date: 20140519
  Receipt Date: 20140519
  Transmission Date: 20141212
  Serious: No
  Sender: FDA-Public Use
  Company Number: US-AMGEN INC.-USASP2014032144

PATIENT
  Sex: Female

DRUGS (2)
  1. PROLIA [Suspect]
     Indication: OSTEOPOROSIS POSTMENOPAUSAL
     Dosage: UNK
     Route: 065
     Dates: start: 201309
  2. FELODIPINE [Concomitant]
     Indication: BLOOD PRESSURE
     Dosage: UNK
     Route: 065

REACTIONS (7)
  - Headache [Unknown]
  - Sinus disorder [Unknown]
  - Sinusitis [Unknown]
  - Joint swelling [Unknown]
  - Blood pressure abnormal [Unknown]
  - Drug ineffective [Unknown]
  - Asthenia [Unknown]
